FAERS Safety Report 15402248 (Version 1)
Quarter: 2018Q3

REPORT INFORMATION
  Report Type: Spontaneous
  Country: BR (occurrence: BR)
  Receive Date: 20180919
  Receipt Date: 20180919
  Transmission Date: 20181010
  Serious: Yes (Hospitalization)
  Sender: FDA-Public Use
  Company Number: BR-PFIZER INC-2018372147

PATIENT
  Sex: Female

DRUGS (1)
  1. DICOXIBE [Suspect]
     Active Substance: CELECOXIB
     Dosage: 200 MG, 2X/DAY
     Dates: start: 2017, end: 2017

REACTIONS (1)
  - Gastric ulcer perforation [Unknown]
